FAERS Safety Report 17982774 (Version 1)
Quarter: 2020Q3

REPORT INFORMATION
  Report Type: Spontaneous
  Country: US (occurrence: US)
  Receive Date: 20200702
  Receipt Date: 20200702
  Transmission Date: 20201103
  Serious: Yes (Hospitalization)
  Sender: FDA-Public Use
  Company Number: None

PATIENT
  Sex: Female

DRUGS (9)
  1. HYQVIA [Suspect]
     Active Substance: HUMAN IMMUNOGLOBULIN G\HYALURONIDASE RECOMBINANT HUMAN
     Indication: IMMUNODEFICIENCY COMMON VARIABLE
     Dosage: ?WEEK 4 DOSE* PUSH 22.5 ML HY INTO SUBQ SET AT 1 TO 2 ML/MIN.?THEN INFUSE 45 GRAMS (450 ML) IG SUBCUTANEOUSLY. SKIP WEEK 5 AND 6
     Dates: start: 20200528
  2. HYQVIA [Suspect]
     Active Substance: HUMAN IMMUNOGLOBULIN G\HYALURONIDASE RECOMBINANT HUMAN
     Indication: IMMUNODEFICIENCY COMMON VARIABLE
     Dosage: ?WEEK 4 DOSE* PUSH 22.5 ML HY INTO SUBQ SET AT 1 TO 2 ML/MIN.?THEN INFUSE 45 GRAMS (450 ML) IG SUBCUTANEOUSLY. SKIP WEEK 5 AND 6
     Dates: start: 20200528
  3. LIDOCAINE. [Suspect]
     Active Substance: LIDOCAINE
  4. EPINEPHRINE. [Suspect]
     Active Substance: EPINEPHRINE
  5. TEGADERM FILM [Concomitant]
  6. PREDNISONE. [Suspect]
     Active Substance: PREDNISONE
  7. BENZONATATE. [Suspect]
     Active Substance: BENZONATATE
  8. ALBUTEROL AER [Suspect]
     Active Substance: ALBUTEROL
  9. CEFDINIR. [Suspect]
     Active Substance: CEFDINIR

REACTIONS (2)
  - Therapy interrupted [None]
  - Illness [None]
